FAERS Safety Report 11938615 (Version 1)
Quarter: 2016Q1

REPORT INFORMATION
  Report Type: Spontaneous
  Country: US (occurrence: None)
  Receive Date: 20160120
  Receipt Date: 20160120
  Transmission Date: 20160526
  Serious: Yes (Disabling)
  Sender: FDA-Public Use
  Company Number: None

PATIENT
  Age: 50 Year
  Sex: Male
  Weight: 72.58 kg

DRUGS (1)
  1. TRAZODONE 50 MG APOTEX WALMART PHARMACY LAKEVILLE, MN [Suspect]
     Active Substance: TRAZODONE HYDROCHLORIDE
     Indication: SLEEP DISORDER
     Route: 048
     Dates: start: 201403, end: 201411

REACTIONS (4)
  - Penis disorder [None]
  - Spontaneous penile erection [None]
  - Penile pain [None]
  - Peyronie^s disease [None]
